FAERS Safety Report 4310282-2 (Version None)
Quarter: 2004Q1

REPORT INFORMATION
  Report Type: 
  Country: None (occurrence: None)
  Receive Date: 20040303
  Receipt Date: 20040220
  Transmission Date: 20041129
  Serious: Yes (Hospitalization)
  Sender: FDA-Public Use
  Company Number: US-BRISTOL-MYERS SQUIBB COMPANY-12513123

PATIENT
  Age: 56 Year
  Sex: Male

DRUGS (10)
  1. REYATAZ [Suspect]
     Indication: HIV INFECTION
     Route: 048
  2. PRAVACHOL [Concomitant]
  3. ZIAGEN [Concomitant]
  4. VIREAD [Concomitant]
  5. EPIVIR [Concomitant]
  6. NORVIR [Concomitant]
  7. ACCUPRIL [Concomitant]
  8. WELLBUTRIN [Concomitant]
  9. XANAX [Concomitant]
  10. LIBRAX [Concomitant]

REACTIONS (3)
  - BLOOD CHOLESTEROL INCREASED [None]
  - LOW DENSITY LIPOPROTEIN INCREASED [None]
  - PNEUMONIA [None]
